FAERS Safety Report 10020325 (Version 2)
Quarter: 2014Q2

REPORT INFORMATION
  Report Type: Spontaneous
  Country: AR (occurrence: AR)
  Receive Date: 20140319
  Receipt Date: 20140402
  Transmission Date: 20141212
  Serious: No
  Sender: FDA-Public Use
  Company Number: AR-AMGEN-ARGSP2014019205

PATIENT
  Age: 74 Year
  Sex: Female

DRUGS (4)
  1. ENBREL [Suspect]
     Indication: RHEUMATOID ARTHRITIS
     Dosage: UNK
     Route: 065
     Dates: start: 201202, end: 2013
  2. METHOTREXATE [Concomitant]
     Dosage: UNK
  3. ALPLAX [Concomitant]
     Dosage: UNK
  4. ATENOLOL [Concomitant]
     Dosage: UNK

REACTIONS (6)
  - Arthropathy [Not Recovered/Not Resolved]
  - Musculoskeletal pain [Recovered/Resolved]
  - Weight decreased [Recovered/Resolved]
  - Intervertebral disc protrusion [Unknown]
  - Pharyngitis [Recovered/Resolved]
  - Infection [Recovered/Resolved]
